FAERS Safety Report 4374336-7 (Version None)
Quarter: 2004Q2

REPORT INFORMATION
  Report Type: 
  Country: None (occurrence: None)
  Receive Date: 20040608
  Receipt Date: 20040608
  Transmission Date: 20050107
  Serious: Yes (Life-Threatening, Disabling, Congenital Anomaly)
  Sender: FDA-Public Use
  Company Number: None

PATIENT
  Age: 41 Year
  Sex: Female
  Weight: 46.7205 kg

DRUGS (2)
  1. EFFEXOR XR [Suspect]
     Indication: ANXIETY
     Dosage: 1 1 ORAL
     Route: 048
     Dates: start: 20040115, end: 20040115
  2. VALIUM [Concomitant]

REACTIONS (9)
  - AGITATION [None]
  - AGORAPHOBIA [None]
  - BIPOLAR DISORDER [None]
  - DEPRESSION [None]
  - FEELING ABNORMAL [None]
  - INSOMNIA [None]
  - NIGHTMARE [None]
  - PANIC DISORDER [None]
  - SUICIDAL IDEATION [None]
